FAERS Safety Report 5385066-7 (Version None)
Quarter: 2007Q3

REPORT INFORMATION
  Report Type: 
  Country: None (occurrence: None)
  Receive Date: 20070706
  Receipt Date: 20070706
  Transmission Date: 20080115
  Serious: Yes (Life-Threatening)
  Sender: FDA-Public Use
  Company Number: None

PATIENT
  Age: 33 Year
  Sex: Male
  Weight: 122 kg

DRUGS (3)
  1. LAMICTAL [Suspect]
     Indication: PARTIAL SEIZURES
     Dosage: 500MG QAM PO
     Route: 048
     Dates: start: 20061201
  2. VIT B-12 [Concomitant]
  3. FOLIC ACID [Concomitant]

REACTIONS (1)
  - LEUKOPENIA [None]
